FAERS Safety Report 15428090 (Version 1)
Quarter: 2018Q3

REPORT INFORMATION
  Report Type: Report from Study
  Country: ES (occurrence: ES)
  Receive Date: 20180926
  Receipt Date: 20180926
  Transmission Date: 20181010
  Serious: Yes (Other)
  Sender: FDA-Public Use
  Company Number: ES-VELOXIS PHARMACEUTICALS, INC.-2018VELES1089

PATIENT
  Age: 61 Year
  Sex: Female
  Weight: 59.8 kg

DRUGS (1)
  1. ENVARSUS XR [Suspect]
     Active Substance: TACROLIMUS
     Indication: IMMUNOSUPPRESSANT DRUG THERAPY
     Dosage: 9 UNK, QD
     Route: 048
     Dates: start: 20170717, end: 20170719

REACTIONS (1)
  - Delayed graft function [Recovered/Resolved]

NARRATIVE: CASE EVENT DATE: 20170718
